FAERS Safety Report 6012259-8 (Version None)
Quarter: 2008Q4

REPORT INFORMATION
  Report Type: 
  Country: None (occurrence: None)
  Receive Date: 20081218
  Receipt Date: 20081218
  Transmission Date: 20090506
  Serious: Yes (Hospitalization, Other)
  Sender: FDA-Public Use
  Company Number: US-ABBOTT-08P-163-0491991-00

PATIENT
  Sex: Female
  Weight: 71.278 kg

DRUGS (6)
  1. HUMIRA [Suspect]
     Indication: CROHN'S DISEASE
     Dates: start: 20071101
  2. AZATHIOPRINE [Concomitant]
     Indication: ARTHRALGIA
  3. AZATHIOPRINE [Concomitant]
     Indication: PROPHYLAXIS
  4. AZATHIOPRINE [Concomitant]
     Indication: ADVERSE DRUG REACTION
  5. PREDNISONE TAB [Concomitant]
     Indication: PROPHYLAXIS
     Dosage: ONCE EVERY 2 WEEKS WITH HUMIRA INJECTION
  6. PREDNISONE TAB [Concomitant]
     Indication: ADVERSE DRUG REACTION

REACTIONS (5)
  - ABDOMINAL INFECTION [None]
  - ARTHRALGIA [None]
  - CROHN'S DISEASE [None]
  - FISTULA [None]
  - JOINT SWELLING [None]
